FAERS Safety Report 11155872 (Version 1)
Quarter: 2015Q2

REPORT INFORMATION
  Report Type: Spontaneous
  Country: US (occurrence: None)
  Receive Date: 20150601
  Receipt Date: 20150601
  Transmission Date: 20150821
  Serious: Yes (Hospitalization, Disabling)
  Sender: FDA-Public Use
  Company Number: None

PATIENT
  Age: 77 Year
  Sex: Female
  Weight: 66.68 kg

DRUGS (6)
  1. PREDNISONE. [Concomitant]
     Active Substance: PREDNISONE
  2. FISH OIL [Suspect]
     Active Substance: FISH OIL
  3. LISINOPRIL. [Concomitant]
     Active Substance: LISINOPRIL
  4. OMEPRAZOLE. [Concomitant]
     Active Substance: OMEPRAZOLE
  5. NORVEST [Concomitant]
  6. ALENDRONATE SODIUM. [Suspect]
     Active Substance: ALENDRONATE SODIUM
     Indication: BONE DISORDER
     Dosage: 70 MG, 1 PILL PER WEEK, WEEKLY, BY MOUTH
     Route: 048
     Dates: start: 20131217, end: 20140112

REACTIONS (6)
  - Epistaxis [None]
  - Rectal haemorrhage [None]
  - Mouth haemorrhage [None]
  - Unevaluable event [None]
  - Blood pressure decreased [None]
  - Ulcer [None]

NARRATIVE: CASE EVENT DATE: 20140112
